FAERS Safety Report 8600202-4 (Version None)
Quarter: 2012Q3

REPORT INFORMATION
  Report Type: 
  Country: None (occurrence: None)
  Receive Date: 20120817
  Receipt Date: 20120810
  Transmission Date: 20120928
  Serious: No
  Sender: FDA-Public Use
  Company Number: US-BIOGENIDEC-2011BI046089

PATIENT
  Age: 15 Year
  Sex: Female

DRUGS (1)
  1. TYSABRI [Suspect]
     Indication: MULTIPLE SCLEROSIS
     Route: 042
     Dates: start: 20110609, end: 20111230

REACTIONS (6)
  - MONOPLEGIA [None]
  - DRUG INEFFECTIVE [None]
  - ASTHMA [None]
  - TENDON DISORDER [None]
  - ABASIA [None]
  - PAIN IN EXTREMITY [None]
